FAERS Safety Report 14452623 (Version 1)
Quarter: 2018Q1

REPORT INFORMATION
  Report Type: Spontaneous
  Country: US (occurrence: US)
  Receive Date: 20180126
  Receipt Date: 20180126
  Transmission Date: 20180509
  Serious: No
  Sender: FDA-Public Use
  Company Number: None

PATIENT
  Age: 34 Year
  Sex: Female

DRUGS (10)
  1. ENBREL [Suspect]
     Active Substance: ETANERCEPT
     Indication: GASTROOESOPHAGEAL REFLUX DISEASE
     Dosage: DOSE - 1 PEN
     Route: 058
     Dates: start: 20180126
  2. CLONAZEPAM. [Concomitant]
     Active Substance: CLONAZEPAM
  3. OXYCODONE [Concomitant]
     Active Substance: OXYCODONE
  4. OXAZEPAM. [Concomitant]
     Active Substance: OXAZEPAM
  5. OXYCONTIN [Concomitant]
     Active Substance: OXYCODONE HYDROCHLORIDE
  6. PROMETHEGAN [Concomitant]
     Active Substance: PROMETHAZINE HYDROCHLORIDE
  7. CARISOPRODOL. [Concomitant]
     Active Substance: CARISOPRODOL
  8. LOW-OGESTREL [Concomitant]
     Active Substance: ETHINYL ESTRADIOL\NORGESTREL
  9. ESOMEROA MAG [Concomitant]
  10. GABAPENTIN. [Concomitant]
     Active Substance: GABAPENTIN

REACTIONS (1)
  - Gastrointestinal infection [None]
